FAERS Safety Report 25471887 (Version 6)
Quarter: 2025Q4

REPORT INFORMATION
  Report Type: Spontaneous
  Country: US (occurrence: US)
  Receive Date: 20250624
  Receipt Date: 20251013
  Transmission Date: 20260118
  Serious: Yes (Other)
  Sender: CHIESI
  Company Number: US-CHIESI-2025CHF04284

PATIENT
  Sex: Female
  Weight: 60.2 kg

DRUGS (1)
  1. FILSUVEZ [Suspect]
     Active Substance: BIRCH TRITERPENES
     Indication: Epidermolysis bullosa
     Dosage: UNK, PRN
     Route: 061
     Dates: start: 20250507

REACTIONS (9)
  - Gastrointestinal disorder [Not Recovered/Not Resolved]
  - Wound [Recovering/Resolving]
  - Skin fragility [Not Recovered/Not Resolved]
  - Skin infection [Recovering/Resolving]
  - Pruritus [Recovering/Resolving]
  - Impaired healing [Not Recovered/Not Resolved]
  - Pruritus [Recovering/Resolving]
  - Product administration interrupted [Not Recovered/Not Resolved]
  - Product complaint [Recovered/Resolved]

NARRATIVE: CASE EVENT DATE: 20250101
